FAERS Safety Report 22368413 (Version 5)
Quarter: 2024Q2

REPORT INFORMATION
  Report Type: Spontaneous
  Country: IN (occurrence: IN)
  Receive Date: 20230525
  Receipt Date: 20240409
  Transmission Date: 20240716
  Serious: Yes (Other)
  Sender: FDA-Public Use
  Company Number: IN-PFIZER INC-2020113411

PATIENT
  Age: 56 Year
  Sex: Male
  Weight: 71.4 kg

DRUGS (22)
  1. SUTENT [Suspect]
     Active Substance: SUNITINIB MALATE
     Indication: Metastatic renal cell carcinoma
     Dosage: 2 WEEKS ON - 1 WEEK OFF
     Route: 048
     Dates: start: 20190909, end: 20200522
  2. SUTENT [Suspect]
     Active Substance: SUNITINIB MALATE
     Dosage: 2WEEKS ON 1 WEEK OFF
     Dates: start: 202007
  3. SUTENT [Suspect]
     Active Substance: SUNITINIB MALATE
     Dosage: 2 WEEKS ON 1 WEEK OFF
     Route: 048
     Dates: start: 20210403
  4. SUTENT [Suspect]
     Active Substance: SUNITINIB MALATE
     Dosage: 10 DAYS ON AND 1 WEEK OFF
  5. SUTENT [Suspect]
     Active Substance: SUNITINIB MALATE
     Dosage: ONE WEEK ON + ONE WEEK OFF
     Dates: start: 202206
  6. SUTENT [Suspect]
     Active Substance: SUNITINIB MALATE
     Dosage: UNK
     Dates: start: 202302, end: 202304
  7. SUTENT [Suspect]
     Active Substance: SUNITINIB MALATE
     Dosage: 25 MG, 1X/DAY
     Dates: start: 202304
  8. SUTENT [Suspect]
     Active Substance: SUNITINIB MALATE
     Dosage: 25 MG, 1X/DAY
     Route: 048
     Dates: start: 20230916
  9. SUTENT [Suspect]
     Active Substance: SUNITINIB MALATE
     Dosage: FOR 3 MONTHS
     Route: 048
     Dates: start: 20231215
  10. AMLODIPINE BESYLATE [Concomitant]
     Active Substance: AMLODIPINE BESYLATE
     Dosage: 5 MG
  11. AMLODIPINE [Concomitant]
     Active Substance: AMLODIPINE BESYLATE
     Dosage: 2.5 MG, 1X/DAY
  12. BEVON [BROMHEXINE HYDROCHLORIDE] [Concomitant]
     Dosage: 1 DF, 3X/DAY
  13. COTARYL [Concomitant]
     Dosage: UNK
  14. CUTISOFT [Concomitant]
     Dosage: 1 DF, 1X/DAY (EMPTY STOMACH)
  15. FOLVITE [Concomitant]
     Active Substance: FOLIC ACID
     Dosage: 5 MG, 1X/DAY
  16. MBSON SL [Concomitant]
     Dosage: 1 DF, WEEKLY (ONCE A WEEK FOR 6 WEEKS)
  17. MBSON SL [Concomitant]
     Dosage: 1 DF, WEEKLY (ONCE A WEEK FOR 6 WEEKS)
     Dates: start: 20230916
  18. MBSON SL [Concomitant]
     Dosage: 1TABLET, ONCE A WEEK FOR 3 MONTHS
     Route: 060
     Dates: start: 20231215
  19. ONDEM MD [Concomitant]
     Dosage: 4 MG
     Dates: start: 20230916
  20. ONDEM MD [Concomitant]
     Dosage: 4 MG STAT (IMMEDIATELY) FOR 1 DAY
     Route: 060
     Dates: start: 20231215
  21. PANTOPRAZOLE [Concomitant]
     Active Substance: PANTOPRAZOLE
     Dosage: UNK, 1X/DAY
  22. LEVOTHYROXINE [Concomitant]
     Active Substance: LEVOTHYROXINE\LEVOTHYROXINE SODIUM
     Dosage: UNK

REACTIONS (21)
  - Ascites [Unknown]
  - Palmar-plantar erythrodysaesthesia syndrome [Unknown]
  - Skin toxicity [Recovered/Resolved]
  - Neoplasm progression [Unknown]
  - Heart rate increased [Unknown]
  - Oedema peripheral [Unknown]
  - Pain in extremity [Unknown]
  - Arthralgia [Unknown]
  - Dermatitis allergic [Unknown]
  - Peripheral swelling [Unknown]
  - Rash [Unknown]
  - Pain [Unknown]
  - Sensitive skin [Unknown]
  - Blood cholesterol increased [Unknown]
  - Blood triglycerides increased [Unknown]
  - Lymphadenopathy [Unknown]
  - Stomatitis [Unknown]
  - Nasopharyngitis [Unknown]
  - Pigmentation disorder [Recovering/Resolving]
  - Pruritus [Recovering/Resolving]
  - Off label use [Unknown]

NARRATIVE: CASE EVENT DATE: 20200101
